FAERS Safety Report 17250164 (Version 1)
Quarter: 2020Q1

REPORT INFORMATION
  Report Type: Spontaneous
  Country: US (occurrence: US)
  Receive Date: 20200109
  Receipt Date: 20200109
  Transmission Date: 20200409
  Serious: No
  Sender: FDA-Public Use
  Company Number: US-BIOGEN-2020BI00824950

PATIENT
  Sex: Female

DRUGS (1)
  1. TECFIDERA [Suspect]
     Active Substance: DIMETHYL FUMARATE
     Indication: MULTIPLE SCLEROSIS
     Route: 065
     Dates: start: 20150326

REACTIONS (7)
  - Fall [Recovered/Resolved]
  - Drug ineffective [Unknown]
  - Ligament sprain [Recovered/Resolved]
  - Musculoskeletal disorder [Not Recovered/Not Resolved]
  - Upper limb fracture [Recovered/Resolved]
  - Balance disorder [Not Recovered/Not Resolved]
  - Stress [Unknown]

NARRATIVE: CASE EVENT DATE: 2019
